FAERS Safety Report 13449884 (Version 1)
Quarter: 2017Q2

REPORT INFORMATION
  Report Type: Spontaneous
  Country: US (occurrence: US)
  Receive Date: 20170417
  Receipt Date: 20170417
  Transmission Date: 20170830
  Serious: No
  Sender: FDA-Public Use
  Company Number: US-BION-20160203

PATIENT
  Age: 72 Year
  Sex: Female

DRUGS (4)
  1. ONE-A-DAY? WOMEN^S [Concomitant]
  2. ALEVE [Suspect]
     Active Substance: NAPROXEN SODIUM
     Indication: MYALGIA
     Dosage: 2 DOSAGE FORMS TAKEN DAILY
     Route: 048
  3. GLUCOSAMINE [Concomitant]
     Active Substance: GLUCOSAMINE
  4. GAVISCON [Concomitant]
     Active Substance: ALUMINUM HYDROXIDE\MAGNESIUM CARBONATE

REACTIONS (7)
  - Drug prescribing error [Unknown]
  - Poor quality drug administered [Unknown]
  - Inappropriate schedule of drug administration [Unknown]
  - Abdominal discomfort [Unknown]
  - Incorrect drug administration duration [Unknown]
  - Product taste abnormal [Recovered/Resolved]
  - Product physical issue [Unknown]

NARRATIVE: CASE EVENT DATE: 20160614
